FAERS Safety Report 21375644 (Version 1)
Quarter: 2022Q3

REPORT INFORMATION
  Report Type: Spontaneous
  Country: CA (occurrence: CA)
  Receive Date: 20220926
  Receipt Date: 20220926
  Transmission Date: 20221027
  Serious: Yes (Hospitalization)
  Sender: FDA-Public Use
  Company Number: CA-TEVA-2022-CA-2075487

PATIENT
  Age: 31 Month
  Sex: Male
  Weight: 12 kg

DRUGS (2)
  1. AMOXICILLIN [Suspect]
     Active Substance: AMOXICILLIN
     Indication: Otitis media acute
     Dosage: 1100 MILLIGRAM DAILY;
     Route: 048
  2. LANSOPRAZOLE [Concomitant]
     Active Substance: LANSOPRAZOLE
     Indication: Product used for unknown indication

REACTIONS (3)
  - Clostridium difficile colitis [Recovered/Resolved]
  - Clostridium test positive [Recovered/Resolved]
  - Diarrhoea [Recovered/Resolved]
